FAERS Safety Report 14935429 (Version 2)
Quarter: 2020Q2

REPORT INFORMATION
  Report Type: Spontaneous
  Country: MX (occurrence: MX)
  Receive Date: 20180524
  Receipt Date: 20200415
  Transmission Date: 20200713
  Serious: Yes (Death, Other)
  Sender: FDA-Public Use
  Company Number: MX-BIOMARINAP-MX-2018-118404

PATIENT
  Age: 13 Year
  Sex: Female

DRUGS (1)
  1. NAGLAZYME [Suspect]
     Active Substance: GALSULFASE
     Indication: MUCOPOLYSACCHARIDOSIS VI
     Dosage: UNK
     Route: 042
     Dates: start: 20100210

REACTIONS (3)
  - Dyspnoea [Unknown]
  - Respiratory disorder [Fatal]
  - Pyrexia [Unknown]

NARRATIVE: CASE EVENT DATE: 20180515
